FAERS Safety Report 5541041-0 (Version None)
Quarter: 2007Q4

REPORT INFORMATION
  Report Type: 
  Country: None (occurrence: None)
  Receive Date: 20071209
  Receipt Date: 20061228
  Transmission Date: 20080405
  Serious: No
  Sender: FDA-Public Use
  Company Number: US-AMGEN-KDL205050

PATIENT
  Sex: Male

DRUGS (1)
  1. ENBREL [Suspect]
     Indication: RHEUMATOID ARTHRITIS
     Route: 058
     Dates: start: 20031101

REACTIONS (5)
  - BREAST DISCHARGE [None]
  - GENERALISED ERYTHEMA [None]
  - MELANOCYTIC NAEVUS [None]
  - NIPPLE DISORDER [None]
  - PRURITUS GENERALISED [None]
